FAERS Safety Report 7570730-1 (Version None)
Quarter: 2011Q2

REPORT INFORMATION
  Report Type: 
  Country: None (occurrence: None)
  Receive Date: 20110624
  Receipt Date: 20110512
  Transmission Date: 20111010
  Serious: No
  Sender: FDA-Public Use
  Company Number: US-ALLERGAN-1106565US

PATIENT
  Age: 62 Year
  Sex: Female

DRUGS (4)
  1. LATISSE [Suspect]
     Indication: GROWTH OF EYELASHES
     Dosage: 1 GTT, QHS
     Route: 061
     Dates: start: 20110401
  2. MASCARA [Concomitant]
  3. OPTIVE [Concomitant]
  4. EYELINER [Concomitant]

REACTIONS (2)
  - VISION BLURRED [None]
  - SKIN HYPERPIGMENTATION [None]
